FAERS Safety Report 15500957 (Version 1)
Quarter: 2018Q4

REPORT INFORMATION
  Report Type: Spontaneous
  Country: IE (occurrence: IE)
  Receive Date: 20181015
  Receipt Date: 20181015
  Transmission Date: 20190205
  Serious: Yes (Hospitalization)
  Sender: FDA-Public Use
  Company Number: IE-ABBVIE-18P-229-2514092-00

PATIENT
  Age: 17 Year
  Sex: Male

DRUGS (1)
  1. LEVOBUPIVACAINE [Suspect]
     Active Substance: LEVOBUPIVACAINE
     Indication: NERVE BLOCK
     Route: 058

REACTIONS (1)
  - Neuropathy peripheral [Recovered/Resolved]
